FAERS Safety Report 9817926 (Version 1)
Quarter: 2014Q1

REPORT INFORMATION
  Report Type: Spontaneous
  Country: US (occurrence: US)
  Receive Date: 20140115
  Receipt Date: 20140115
  Transmission Date: 20141002
  Serious: Yes (Hospitalization)
  Sender: FDA-Public Use
  Company Number: PHEH2014US000957

PATIENT
  Sex: Male

DRUGS (8)
  1. DIOVAN [Suspect]
     Indication: HYPERTENSION
     Dosage: 80 MG, QD
  2. DIOVAN [Suspect]
     Dosage: 80 MG, BID
     Route: 048
  3. CARVEDILOL [Concomitant]
     Dosage: 25 MG, BID
     Route: 048
  4. SOTALOL [Concomitant]
     Dosage: 80 MG, BID
     Route: 048
  5. DIGOXIN [Concomitant]
     Dosage: 125 MG, QD
     Route: 048
  6. WARFARIN [Concomitant]
     Dosage: 10 MG, QD
     Route: 048
  7. COQ-10 [Concomitant]
     Dosage: 100 MG, QD
     Route: 048
  8. TORSEMIDE [Concomitant]
     Dosage: UNK UKN, UNK

REACTIONS (2)
  - Atrial fibrillation [Unknown]
  - Thrombosis [Unknown]
